FAERS Safety Report 4320325-8 (Version None)
Quarter: 2004Q1

REPORT INFORMATION
  Report Type: 
  Country: None (occurrence: None)
  Receive Date: 20040322
  Receipt Date: 20040317
  Transmission Date: 20041129
  Serious: Yes (Hospitalization, Other)
  Sender: FDA-Public Use
  Company Number: 200410592DE

PATIENT
  Age: 52 Year
  Sex: Female

DRUGS (8)
  1. TAXOTERE [Suspect]
     Indication: BREAST CANCER
     Route: 042
     Dates: start: 20040304, end: 20040304
  2. DOXORUBICIN HCL [Suspect]
     Indication: BREAST CANCER
     Dates: start: 20040304, end: 20040304
  3. CYCLOPHOSPHAMIDE [Suspect]
     Indication: BREAST CANCER
     Dates: start: 20040304, end: 20040304
  4. CIPROFLOXACIN [Suspect]
     Dates: start: 20040309, end: 20040310
  5. FORTECORTIN [Concomitant]
     Dates: end: 20040308
  6. ZOFRAN [Concomitant]
     Route: 048
     Dates: start: 20040304
  7. COLONY STIMULATING FACTORS [Concomitant]
     Route: 058
     Dates: end: 20040305
  8. UROMITEXAN [Concomitant]
     Dates: start: 20040304

REACTIONS (6)
  - ABDOMINAL PAIN UPPER [None]
  - ANOREXIA [None]
  - DEHYDRATION [None]
  - GASTRIC ATONY [None]
  - NAUSEA [None]
  - TREATMENT NONCOMPLIANCE [None]
